FAERS Safety Report 25078731 (Version 1)
Quarter: 2025Q1

REPORT INFORMATION
  Report Type: Spontaneous
  Country: US (occurrence: None)
  Receive Date: 20250314
  Receipt Date: 20250314
  Transmission Date: 20250408
  Serious: Yes (Disabling)
  Sender: FDA-CTU
  Company Number: None

PATIENT
  Age: 51 Year
  Sex: Female
  Weight: 99.9 kg

DRUGS (7)
  1. ADVAIR DISKUS [Suspect]
     Active Substance: FLUTICASONE PROPIONATE\SALMETEROL XINAFOATE
     Indication: Asthma
     Dosage: TWICE A DAY RESPIRATORY (INHALATION)
     Route: 055
     Dates: start: 20000101
  2. Hydroxychloroquine Wixela Maxalt [Concomitant]
  3. AMBIEN [Concomitant]
     Active Substance: ZOLPIDEM TARTRATE
  4. FISH OIL [Concomitant]
     Active Substance: FISH OIL
  5. low dose aspirn [Concomitant]
  6. VITAMINS [Concomitant]
     Active Substance: VITAMINS
  7. CLARITIN [Concomitant]
     Active Substance: LORATADINE

REACTIONS (1)
  - Cataract [None]

NARRATIVE: CASE EVENT DATE: 20250103
